FAERS Safety Report 6016534-2 (Version None)
Quarter: 2008Q4

REPORT INFORMATION
  Report Type: 
  Country: None (occurrence: None)
  Receive Date: 20081218
  Receipt Date: 20081211
  Transmission Date: 20090506
  Serious: Yes (Other)
  Sender: FDA-Public Use
  Company Number: CHNY2008DE04459

PATIENT
  Age: 32 Year
  Sex: Female

DRUGS (1)
  1. NICOTINELL TTS           (NICOTINE) TRAN-THERAPEUTIC-SYSTEM [Suspect]
     Dosage: 21 MG, QD, TRANSDERMAL
     Route: 062
     Dates: start: 20081124, end: 20081124

REACTIONS (2)
  - MONOPLEGIA [None]
  - PAIN [None]
